FAERS Safety Report 23298113 (Version 1)
Quarter: 2023Q4

REPORT INFORMATION
  Report Type: Spontaneous
  Country: US (occurrence: None)
  Receive Date: 20231214
  Receipt Date: 20231214
  Transmission Date: 20240109
  Serious: Yes (Other)
  Sender: FDA-Public Use
  Company Number: 2023A279625

PATIENT

DRUGS (2)
  1. SEROQUEL [Suspect]
     Active Substance: QUETIAPINE FUMARATE
     Dosage: 100-200 MG, AS REQUIRED
     Route: 048
  2. VALIUM [Concomitant]
     Active Substance: DIAZEPAM
     Indication: Anxiety

REACTIONS (7)
  - Neoplasm malignant [Unknown]
  - Pain [Unknown]
  - Insomnia [Unknown]
  - Anxiety [Unknown]
  - Menopause [Unknown]
  - Body dysmorphic disorder [Unknown]
  - Restless legs syndrome [Unknown]
